FAERS Safety Report 10118655 (Version 2)
Quarter: 2015Q1

REPORT INFORMATION
  Report Type: Other
  Country: US (occurrence: US)
  Receive Date: 20140426
  Receipt Date: 20150202
  Transmission Date: 20150720
  Serious: Yes (Hospitalization, Other)
  Sender: FDA-Public Use
  Company Number: US-GSKPPD-2014GSK020631

PATIENT
  Age: 44 Year
  Sex: Male

DRUGS (2)
  1. ATENOLOL. [Concomitant]
     Active Substance: ATENOLOL
     Dates: end: 200802
  2. AVANDIA [Suspect]
     Active Substance: ROSIGLITAZONE MALEATE
     Indication: DIABETES MELLITUS
     Dosage: DATES OF AVANDIA COULD NOT BE CONFIRMED FROM RECORDS REVIEWED
     Route: 048

REACTIONS (1)
  - Coronary arterial stent insertion [Recovered/Resolved]

NARRATIVE: CASE EVENT DATE: 20080228
